FAERS Safety Report 14572142 (Version 2)
Quarter: 2018Q1

REPORT INFORMATION
  Report Type: Spontaneous
  Country: GB (occurrence: GB)
  Receive Date: 20180226
  Receipt Date: 20180309
  Transmission Date: 20180509
  Serious: Yes (Death, Hospitalization)
  Sender: FDA-Public Use
  Company Number: GB-NOVAST LABORATORIES, LTD-GB-2018NOV000103

PATIENT

DRUGS (1)
  1. BUTALBITAL, ACETAMINOPHEN, AND CAFFEINE [Suspect]
     Active Substance: ACETAMINOPHEN\BUTALBITAL\CAFFEINE
     Indication: PAIN MANAGEMENT
     Dosage: UNK

REACTIONS (9)
  - Immunodeficiency [Fatal]
  - Pulmonary oedema [Fatal]
  - Hepatic function abnormal [Unknown]
  - Respiratory failure [Fatal]
  - Malnutrition [Fatal]
  - Overdose [Unknown]
  - Anaemia [Fatal]
  - Pyelonephritis acute [Fatal]
  - Electrolyte imbalance [Fatal]
